FAERS Safety Report 16322016 (Version 3)
Quarter: 2019Q2

REPORT INFORMATION
  Report Type: Spontaneous
  Country: US (occurrence: US)
  Receive Date: 20190516
  Receipt Date: 20190621
  Transmission Date: 20190711
  Serious: Yes (Hospitalization, Other)
  Sender: FDA-Public Use
  Company Number: US-TEVA-2019-US-1048602

PATIENT
  Sex: Male

DRUGS (3)
  1. PROVIGIL [Suspect]
     Active Substance: MODAFINIL
     Indication: ASTHENIA
     Dosage: FOUR 100 MG TABLETS YESTERDAY, SPLIT BETWEEN MORNING AND 4 PM
  2. PROVIGIL [Suspect]
     Active Substance: MODAFINIL
     Dosage: 100 MILLIGRAM DAILY;
  3. PROVIGIL [Suspect]
     Active Substance: MODAFINIL
     Route: 065
     Dates: start: 201811

REACTIONS (11)
  - Dysarthria [Unknown]
  - Dehydration [Unknown]
  - Prostate infection [Unknown]
  - Asthenia [Unknown]
  - Product use in unapproved indication [Unknown]
  - Bladder cancer [Unknown]
  - Insomnia [Unknown]
  - Psychomotor hyperactivity [Unknown]
  - Hypoacusis [Unknown]
  - Sleep disorder [Unknown]
  - Drug ineffective [Unknown]
